FAERS Safety Report 5146621-2 (Version None)
Quarter: 2006Q4

REPORT INFORMATION
  Report Type: 
  Country: None (occurrence: None)
  Receive Date: 20061102
  Receipt Date: 20061020
  Transmission Date: 20070319
  Serious: Yes (Other)
  Sender: FDA-Public Use
  Company Number: 2006115130

PATIENT
  Age: 16 Year
  Sex: Male

DRUGS (1)
  1. CLINDAMYCIN [Suspect]
     Indication: ACNE
     Dosage: AS NECESSARY, TOPICAL
     Route: 061
     Dates: start: 20060801

REACTIONS (3)
  - CAUSTIC INJURY [None]
  - CORNEAL SCAR [None]
  - IRITIS [None]
